FAERS Safety Report 6701994-1 (Version None)
Quarter: 2010Q2

REPORT INFORMATION
  Report Type: 
  Country: None (occurrence: None)
  Receive Date: 20100429
  Receipt Date: 20100422
  Transmission Date: 20101027
  Serious: No
  Sender: FDA-Public Use
  Company Number: AT-ASTRAZENECA-2010SE18289

PATIENT
  Age: 42 Year
  Sex: Male
  Weight: 77 kg

DRUGS (5)
  1. SEROQUEL [Suspect]
     Indication: SCHIZOPHRENIA
     Route: 048
     Dates: start: 20090331, end: 20100417
  2. HALDOL [Concomitant]
     Indication: SCHIZOPHRENIA
     Route: 048
     Dates: start: 20081125
  3. HALDOL [Concomitant]
     Route: 048
     Dates: start: 20100315, end: 20100417
  4. ABILIFY [Concomitant]
     Indication: SCHIZOPHRENIA
     Route: 048
     Dates: start: 20100115
  5. XANOR [Concomitant]
     Indication: SCHIZOPHRENIA
     Route: 048
     Dates: start: 20090603

REACTIONS (2)
  - LEUKOPENIA [None]
  - OVERDOSE [None]
